FAERS Safety Report 9770967 (Version 1)
Quarter: 2013Q4

REPORT INFORMATION
  Report Type: Spontaneous
  Country: US (occurrence: US)
  Receive Date: 20131218
  Receipt Date: 20131218
  Transmission Date: 20140711
  Serious: No
  Sender: FDA-Public Use
  Company Number: US-MYLANLABS-2012S1024923

PATIENT
  Age: 61 Year
  Sex: Female
  Weight: 108.41 kg

DRUGS (6)
  1. LANSOPRAZOLE DELAYED-RELEASE CAPSULES, USP [Suspect]
     Indication: GASTROOESOPHAGEAL REFLUX DISEASE
     Route: 048
     Dates: start: 201209, end: 20121124
  2. IRON [Concomitant]
     Indication: ANAEMIA
     Route: 042
     Dates: start: 2012
  3. ZOLOFT [Concomitant]
     Indication: DEPRESSION
  4. LEVOTHYROXINE [Concomitant]
     Indication: HYPOTHYROIDISM
  5. NORCO [Concomitant]
     Indication: BACK PAIN
     Dosage: 10MG/325MG
  6. XANAX [Concomitant]
     Indication: INSOMNIA

REACTIONS (3)
  - Drug effect decreased [Recovered/Resolved]
  - Gastrooesophageal reflux disease [Recovered/Resolved]
  - Cough [Recovered/Resolved]
